FAERS Safety Report 10276698 (Version 1)
Quarter: 2014Q3

REPORT INFORMATION
  Report Type: Spontaneous
  Country: US (occurrence: US)
  Receive Date: 20140703
  Receipt Date: 20140703
  Transmission Date: 20150326
  Serious: Yes (Other)
  Sender: FDA-Public Use
  Company Number: PHHY2014US079543

PATIENT
  Age: 70 Year
  Sex: Female

DRUGS (1)
  1. ATORVASTATIN [Suspect]
     Active Substance: ATORVASTATIN
     Indication: HYPERLIPIDAEMIA
     Dates: start: 200910

REACTIONS (8)
  - Fall [Unknown]
  - Muscle enzyme increased [Recovering/Resolving]
  - Immune-mediated necrotising myopathy [Recovering/Resolving]
  - Pain in extremity [Recovering/Resolving]
  - Muscular weakness [Recovering/Resolving]
  - Asthenia [Unknown]
  - Gait disturbance [Recovering/Resolving]
  - Blood creatine phosphokinase increased [Recovering/Resolving]
